FAERS Safety Report 10168398 (Version 2)
Quarter: 2015Q1

REPORT INFORMATION
  Report Type: Spontaneous
  Country: FR (occurrence: FR)
  Receive Date: 20140513
  Receipt Date: 20150204
  Transmission Date: 20150720
  Serious: Yes (Hospitalization)
  Sender: FDA-Public Use
  Company Number: FR-ROCHE-1397348

PATIENT
  Age: 38 Year
  Sex: Female

DRUGS (13)
  1. MABTHERA [Suspect]
     Active Substance: RITUXIMAB
     Indication: LUPUS NEPHRITIS
     Route: 041
     Dates: start: 20140313, end: 20140331
  2. COVERSYL [Concomitant]
     Active Substance: PERINDOPRIL
     Route: 048
  3. NORSET [Concomitant]
     Active Substance: MIRTAZAPINE
     Route: 048
  4. UVEDOSE [Concomitant]
     Active Substance: CHOLECALCIFEROL
     Route: 048
  5. DOLIPRANE [Concomitant]
     Active Substance: ACETAMINOPHEN
     Route: 048
  6. COUMADINE [Concomitant]
     Active Substance: WARFARIN SODIUM
     Route: 048
  7. MICROVAL [Concomitant]
     Active Substance: LEVONORGESTREL
     Route: 065
  8. CORTANCYL [Concomitant]
     Active Substance: PREDNISONE
     Route: 048
  9. TAHOR [Concomitant]
     Active Substance: ATORVASTATIN CALCIUM
     Route: 048
  10. PLAQUENIL [Concomitant]
     Active Substance: HYDROXYCHLOROQUINE SULFATE
     Route: 048
  11. MABTHERA [Suspect]
     Active Substance: RITUXIMAB
     Route: 065
     Dates: start: 2006
  12. OROCAL (FRANCE) [Concomitant]
     Route: 048
  13. OMEPRAZOLE. [Concomitant]
     Active Substance: OMEPRAZOLE

REACTIONS (2)
  - Hypersensitivity vasculitis [Recovered/Resolved]
  - Blood creatinine increased [Recovered/Resolved]

NARRATIVE: CASE EVENT DATE: 20140331
